FAERS Safety Report 20199713 (Version 2)
Quarter: 2022Q4

REPORT INFORMATION
  Report Type: Spontaneous
  Country: US (occurrence: US)
  Receive Date: 20211217
  Receipt Date: 20221212
  Transmission Date: 20230112
  Serious: No
  Sender: FDA-Public Use
  Company Number: US-ORG100016242-2021000531

PATIENT
  Age: 30 Year
  Sex: Male

DRUGS (2)
  1. EXPAREL [Suspect]
     Active Substance: BUPIVACAINE
     Indication: Nerve block
     Dosage: 20 ML EXPAREL ADMIXED WITH 20ML 100MG OF ROPIVACAINE
     Dates: start: 20210920, end: 20210920
  2. ROPIVACAINE [Suspect]
     Active Substance: ROPIVACAINE
     Indication: Nerve block
     Dosage: 20 ML OF ROPIVACAINE ADMIXED WITH 20ML 266MG OF EXPAREL
     Route: 065
     Dates: start: 20210920, end: 20210920

REACTIONS (2)
  - No adverse event [Unknown]
  - Labelled drug-drug interaction medication error [Unknown]

NARRATIVE: CASE EVENT DATE: 20210920
